FAERS Safety Report 7568115-7 (Version None)
Quarter: 2011Q2

REPORT INFORMATION
  Report Type: 
  Country: None (occurrence: None)
  Receive Date: 20110616
  Receipt Date: 20110608
  Transmission Date: 20111010
  Serious: Yes (Death, Hospitalization, Other)
  Sender: FDA-Public Use
  Company Number: WAES 1104ESP00032

PATIENT
  Age: 69 Year
  Sex: Male

DRUGS (11)
  1. ERLOTINIB HYDROCHLORIDE [Suspect]
     Indication: LUNG NEOPLASM MALIGNANT
     Dosage: 150 MG/DAILY PO
     Route: 048
     Dates: start: 20110412, end: 20110502
  2. ERLOTINIB HYDROCHLORIDE [Suspect]
     Indication: LUNG NEOPLASM MALIGNANT
     Dosage: 150 MG/DAILY PO
     Route: 048
     Dates: start: 20100426, end: 20110402
  3. NADROPARIN CALCIUM [Concomitant]
  4. CAP VORINOSTAT [Suspect]
     Indication: LUNG NEOPLASM MALIGNANT
     Dosage: 400 MG/DAILY PO
     Route: 048
     Dates: start: 20100426, end: 20110419
  5. IBUPROFEN [Concomitant]
  6. LACTULOSE [Concomitant]
  7. ASPIRIN [Concomitant]
  8. AUGMENTIN '125' [Concomitant]
  9. DIAZEPAM [Concomitant]
  10. DOMPERIDONE [Concomitant]
  11. PANTOPRAZOLE [Concomitant]

REACTIONS (6)
  - GENERAL PHYSICAL HEALTH DETERIORATION [None]
  - ASTHENIA [None]
  - DYSPNOEA [None]
  - LUNG DISORDER [None]
  - PYREXIA [None]
  - PNEUMONIA [None]
